FAERS Safety Report 6234262-5 (Version None)
Quarter: 2009Q2

REPORT INFORMATION
  Report Type: 
  Country: None (occurrence: None)
  Receive Date: 20090618
  Receipt Date: 20090609
  Transmission Date: 20091009
  Serious: Yes (Other)
  Sender: FDA-Public Use
  Company Number: US-JNJFOC-20090603716

PATIENT
  Sex: Male
  Weight: 159.5 kg

DRUGS (5)
  1. REMICADE [Suspect]
     Indication: PSORIASIS
     Route: 042
  2. XANAX [Concomitant]
  3. PERCOCET [Concomitant]
  4. SOMA [Concomitant]
  5. OXAPROZIN [Concomitant]

REACTIONS (1)
  - THROMBOSIS [None]
